FAERS Safety Report 9097567 (Version 3)
Quarter: 2013Q1

REPORT INFORMATION
  Report Type: Spontaneous
  Country: IN (occurrence: IN)
  Receive Date: 20130212
  Receipt Date: 20130227
  Transmission Date: 20140127
  Serious: Yes (Hospitalization, Other)
  Sender: FDA-Public Use
  Company Number: PHHY2013IN011365

PATIENT
  Age: 70 Year
  Sex: Female

DRUGS (31)
  1. ACLASTA [Suspect]
     Indication: OSTEOPOROTIC FRACTURE
     Dosage: UNK
     Route: 042
     Dates: start: 20120414
  2. ESOMEPRAZOLE [Concomitant]
  3. CEFUROXIME [Concomitant]
  4. EMESTAT [Concomitant]
  5. TRANZAT [Concomitant]
  6. TROFENTYL [Concomitant]
  7. MORPHINE [Concomitant]
  8. PARACETAMOL [Concomitant]
  9. CALCIROL [Concomitant]
  10. LASIX [Concomitant]
  11. PENTOWOK [Concomitant]
  12. ECOSPRIN [Concomitant]
  13. STORVAS [Concomitant]
  14. CORT-S [Concomitant]
  15. NITROCIN                           /02696001/ [Concomitant]
  16. VASOCON [Concomitant]
  17. VERAPAMIL [Concomitant]
  18. POTASSIUM CHLORIDE [Concomitant]
  19. POTKLOR [Concomitant]
  20. ALDACTONE 50 [Concomitant]
  21. AMTAS [Concomitant]
     Indication: HYPERTENSION
  22. TORSEMIDE [Concomitant]
     Indication: HYPERTENSION
  23. FOLVITE [Concomitant]
  24. MVI [Concomitant]
  25. CROCIN [Concomitant]
  26. NOOTROPIL [Concomitant]
  27. DEPLATT [Concomitant]
  28. PREXARON [Concomitant]
  29. THROMBOPHOB                        /00277201/ [Concomitant]
  30. CARCA [Concomitant]
  31. TONACT [Concomitant]

REACTIONS (27)
  - Ischaemic cerebral infarction [Recovering/Resolving]
  - Lacunar infarction [Recovering/Resolving]
  - Spinal compression fracture [Recovering/Resolving]
  - Pleural effusion [Recovering/Resolving]
  - Coronary artery disease [Recovering/Resolving]
  - Cardiomegaly [Recovering/Resolving]
  - Bundle branch block left [Recovering/Resolving]
  - Vascular encephalopathy [Recovering/Resolving]
  - Embolic stroke [Recovering/Resolving]
  - Haemangioma [Recovering/Resolving]
  - Fall [Recovering/Resolving]
  - Fracture [Recovering/Resolving]
  - Head injury [Recovering/Resolving]
  - Back injury [Recovering/Resolving]
  - Spinal fracture [Recovering/Resolving]
  - Hypotension [Recovering/Resolving]
  - Pain [Recovering/Resolving]
  - Carotid artery stenosis [Unknown]
  - Pneumothorax [Unknown]
  - Blood potassium decreased [Unknown]
  - Blood bicarbonate decreased [Unknown]
  - White blood cell count decreased [Unknown]
  - Haematocrit decreased [Unknown]
  - Lymphocyte percentage decreased [Unknown]
  - Protein total decreased [Unknown]
  - Haemoglobin decreased [Unknown]
  - Blood urea increased [Unknown]
